FAERS Safety Report 17797106 (Version 1)
Quarter: 2020Q2

REPORT INFORMATION
  Report Type: Spontaneous
  Country: CA (occurrence: CA)
  Receive Date: 20200518
  Receipt Date: 20200518
  Transmission Date: 20200714
  Serious: Yes (Other)
  Sender: FDA-Public Use
  Company Number: CA-ROCHE-2600686

PATIENT
  Age: 22 Year
  Sex: Male

DRUGS (1)
  1. RITUXIMAB. [Suspect]
     Active Substance: RITUXIMAB
     Indication: PRODUCT USED FOR UNKNOWN INDICATION
     Route: 065

REACTIONS (7)
  - Transplant dysfunction [Unknown]
  - Red blood cell abnormality [Unknown]
  - Graft versus host disease [Unknown]
  - White blood cell disorder [Unknown]
  - Influenza [Unknown]
  - Platelet disorder [Unknown]
  - Epstein-Barr virus infection [Unknown]
